FAERS Safety Report 13594290 (Version 1)
Quarter: 2017Q2

REPORT INFORMATION
  Report Type: Spontaneous
  Country: US (occurrence: US)
  Receive Date: 20170530
  Receipt Date: 20170530
  Transmission Date: 20170830
  Serious: No
  Sender: FDA-Public Use
  Company Number: US-PFIZER INC-2017233820

PATIENT
  Sex: Female

DRUGS (1)
  1. XELJANZ XR [Suspect]
     Active Substance: TOFACITINIB CITRATE
     Dosage: 11 MG, UNK

REACTIONS (5)
  - Peripheral swelling [Recovering/Resolving]
  - Sneezing [Recovering/Resolving]
  - Nasal congestion [Recovering/Resolving]
  - Memory impairment [Recovering/Resolving]
  - Balance disorder [Recovering/Resolving]
